FAERS Safety Report 4402194-0 (Version None)
Quarter: 2004Q3

REPORT INFORMATION
  Report Type: 
  Country: None (occurrence: None)
  Receive Date: 20040720
  Receipt Date: 20040713
  Transmission Date: 20050211
  Serious: Yes (Other)
  Sender: FDA-Public Use
  Company Number: JP-MERCK-0407USA01293

PATIENT
  Age: 35 Year
  Sex: Male

DRUGS (3)
  1. FOSAMAX [Suspect]
     Indication: OSTEOPOROSIS
     Route: 048
     Dates: start: 20020307, end: 20020424
  2. GASTER [Concomitant]
     Route: 065
  3. GONADOTROPHIN, SERUM [Concomitant]
     Route: 030

REACTIONS (1)
  - BLOOD CREATINE PHOSPHOKINASE INCREASED [None]
